FAERS Safety Report 12601646 (Version 2)
Quarter: 2016Q4

REPORT INFORMATION
  Report Type: Spontaneous
  Country: US (occurrence: US)
  Receive Date: 20160728
  Receipt Date: 20161105
  Transmission Date: 20170207
  Serious: No
  Sender: FDA-Public Use
  Company Number: US-ASTRAZENECA-2016SE69901

PATIENT
  Age: 859 Month
  Sex: Female

DRUGS (6)
  1. IBRANCE [Suspect]
     Active Substance: PALBOCICLIB
     Indication: BREAST CANCER FEMALE
     Dosage: 75.0MG UNKNOWN
     Route: 048
     Dates: start: 201507
  2. FASLODEX [Suspect]
     Active Substance: FULVESTRANT
     Indication: BREAST CANCER FEMALE
     Dosage: 75.0MG UNKNOWN
     Route: 030
  3. FASLODEX [Suspect]
     Active Substance: FULVESTRANT
     Indication: BREAST CANCER FEMALE
     Route: 030
     Dates: start: 20150731
  4. XGEVA [Concomitant]
     Active Substance: DENOSUMAB
     Indication: BONE DISORDER
     Dates: start: 201207
  5. FASLODEX [Suspect]
     Active Substance: FULVESTRANT
     Indication: BONE DISORDER
     Dosage: 75.0MG UNKNOWN
     Route: 030
  6. FASLODEX [Suspect]
     Active Substance: FULVESTRANT
     Indication: BONE DISORDER
     Route: 030
     Dates: start: 20150731

REACTIONS (2)
  - Blood count abnormal [Unknown]
  - Neutropenia [Unknown]

NARRATIVE: CASE EVENT DATE: 201507
